FAERS Safety Report 7576268-X (Version None)
Quarter: 2011Q2

REPORT INFORMATION
  Report Type: 
  Country: None (occurrence: None)
  Receive Date: 20110628
  Receipt Date: 20080827
  Transmission Date: 20111010
  Serious: Yes (Other)
  Sender: FDA-Public Use
  Company Number: US-BAYER-200838531NA

PATIENT
  Age: 73 Year
  Sex: Female
  Weight: 103 kg

DRUGS (17)
  1. TRASYLOL [Suspect]
     Dosage: LOADING DOSE 100ML
     Route: 042
     Dates: start: 20030610, end: 20030610
  2. ANCEF [Concomitant]
     Dosage: 750MG PUMP PRIME
     Dates: start: 20030610
  3. TRASYLOL [Suspect]
     Dosage: 50ML/HR
     Route: 042
     Dates: start: 20030610, end: 20030610
  4. VERSED [Concomitant]
     Dosage: 13
     Dates: start: 20030610
  5. TRASYLOL [Suspect]
     Indication: CORONARY ARTERY BYPASS
     Dosage: PUMP PRIME 200ML
     Route: 042
     Dates: start: 20030610, end: 20030610
  6. VANCOMYCIN [Concomitant]
     Dosage: 1GRAM
     Route: 042
     Dates: start: 20030610
  7. HEPARIN [Concomitant]
     Dosage: 30,000 UNITS
     Route: 042
     Dates: start: 20030610
  8. HEPARIN [Concomitant]
     Dosage: 5000 UNITS PUMP PRIME
     Dates: start: 20030610
  9. GENTAMICIN [Concomitant]
     Dosage: UNK
     Route: 042
     Dates: start: 20030610
  10. ROFECOXIB [Concomitant]
     Route: 048
  11. RED BLOOD CELLS [Concomitant]
     Dosage: 1 UNIT
     Dates: start: 20030610
  12. PROPOFOL [Concomitant]
     Dosage: UNK
     Route: 042
     Dates: start: 20030610
  13. GEMFIBROZIL [Concomitant]
     Dosage: 600 MG, BID
     Route: 048
  14. VERSED [Concomitant]
     Dosage: 2 MG
     Route: 042
     Dates: start: 20030610
  15. PROTAMINE SULFATE [Concomitant]
     Dosage: 430MG
     Route: 042
     Dates: start: 20030610
  16. ISOVUE-128 [Concomitant]
     Indication: CATHETERISATION CARDIAC
     Dosage: UNK
     Dates: start: 20030606
  17. ASPIRIN [Concomitant]
     Dosage: 325 MG, QD
     Route: 048

REACTIONS (7)
  - RENAL FAILURE [None]
  - ANHEDONIA [None]
  - PAIN [None]
  - UNEVALUABLE EVENT [None]
  - INJURY [None]
  - ANXIETY [None]
  - DEPRESSION [None]
